FAERS Safety Report 23647090 (Version 1)
Quarter: 2024Q1

REPORT INFORMATION
  Report Type: Spontaneous
  Country: HU (occurrence: HU)
  Receive Date: 20240319
  Receipt Date: 20240319
  Transmission Date: 20240410
  Serious: Yes (Other)
  Sender: FDA-Public Use
  Company Number: HU-SANDOZ-SDZ2023HU001166

PATIENT
  Age: 58 Year
  Sex: Male

DRUGS (6)
  1. CAPECITABINE [Suspect]
     Active Substance: CAPECITABINE
     Indication: Adenocarcinoma
  2. CISPLATIN [Suspect]
     Active Substance: CISPLATIN
     Indication: Adenocarcinoma
  3. DOCETAXEL [Suspect]
     Active Substance: DOCETAXEL\DOCETAXEL ANHYDROUS
     Indication: Adenocarcinoma
     Dosage: SIX CYCLES
  4. FLUOROURACIL [Suspect]
     Active Substance: FLUOROURACIL
     Indication: Oesophageal adenocarcinoma
     Dosage: SIX CYCLES
  5. OXALIPLATIN [Suspect]
     Active Substance: OXALIPLATIN
     Indication: Adenocarcinoma
     Dosage: SIX CYCLES
  6. LEUCOVORIN [Suspect]
     Active Substance: LEUCOVORIN\LEUCOVORIN CALCIUM
     Indication: Adenocarcinoma
     Dosage: SIX CYCLES

REACTIONS (1)
  - Oesophageal adenocarcinoma recurrent [Unknown]
